FAERS Safety Report 24027812 (Version 1)
Quarter: 2024Q2

REPORT INFORMATION
  Report Type: Report from Study
  Country: US (occurrence: US)
  Receive Date: 20240628
  Receipt Date: 20240628
  Transmission Date: 20240716
  Serious: Yes (Other)
  Sender: FDA-Public Use
  Company Number: US-ABBVIE-5815882

PATIENT
  Sex: Female

DRUGS (7)
  1. SKYRIZI [Suspect]
     Active Substance: RISANKIZUMAB-RZAA
     Indication: Crohn^s disease
     Dosage: 360 MG UNDER THE SKIN ; WEEK 12; FORM STRENGTH: 2.4 MILLILITRE(S)
     Route: 058
     Dates: start: 2023, end: 2023
  2. SKYRIZI [Suspect]
     Active Substance: RISANKIZUMAB-RZAA
     Dosage: FORM STRENGTH: 2.4 MILLILITRE(S)
     Route: 058
     Dates: start: 202311
  3. SKYRIZI [Suspect]
     Active Substance: RISANKIZUMAB-RZAA
     Dosage: FORM STRENGTH: 2.4 MILLILITRE(S); DISCONTINUED IN 2024
     Route: 058
     Dates: start: 20240223
  4. SKYRIZI [Suspect]
     Active Substance: RISANKIZUMAB-RZAA
     Dosage: START DATE: 23 APR 2024 OR 24 APR 2024; FORM STRENGTH: 180 MILLIGRAM
     Route: 058
  5. SKYRIZI [Suspect]
     Active Substance: RISANKIZUMAB-RZAA
     Indication: Crohn^s disease
     Dosage: FORM STRENGTH: 600 MG; WEEK 0; 180 MG UNDER THE SKIN EVERY 56 DAYS TITRATION DOSING
     Route: 042
     Dates: start: 20230706, end: 20230706
  6. SKYRIZI [Suspect]
     Active Substance: RISANKIZUMAB-RZAA
     Indication: Crohn^s disease
     Dosage: FORM STRENGTH: 600 MG; WEEK 4; 180 MG UNDER THE SKIN EVERY 56 DAYS TITRATION DOSING
     Route: 042
     Dates: start: 20230803, end: 20230803
  7. SKYRIZI [Suspect]
     Active Substance: RISANKIZUMAB-RZAA
     Indication: Crohn^s disease
     Dosage: FORM STRENGTH: 600 MG; WEEK 8; 180 MG UNDER THE SKIN EVERY 56 DAYS TITRATION DOSING
     Route: 042
     Dates: start: 20230831, end: 20230831

REACTIONS (3)
  - Pancreatic disorder [Unknown]
  - Diarrhoea [Unknown]
  - Nasal congestion [Recovered/Resolved]
